FAERS Safety Report 9315442 (Version 1)
Quarter: 2013Q2

REPORT INFORMATION
  Report Type: Spontaneous
  Country: US (occurrence: US)
  Receive Date: 20130529
  Receipt Date: 20130529
  Transmission Date: 20140414
  Serious: Yes (Death, Other)
  Sender: FDA-Public Use
  Company Number: US-CELGENEUS-163-21880-12121778

PATIENT
  Age: 53 Year
  Sex: Male
  Weight: 64.01 kg

DRUGS (22)
  1. REVLIMID [Suspect]
     Indication: MANTLE CELL LYMPHOMA REFRACTORY
     Dosage: 25 MILLIGRAM
     Route: 048
     Dates: start: 20121024, end: 20121113
  2. LEVAQUIN [Concomitant]
     Indication: PRODUCT USED FOR UNKNOWN INDICATION
     Dosage: 500 MILLIGRAM
     Route: 048
     Dates: start: 20121025
  3. DRONABINOL [Concomitant]
     Indication: PRODUCT USED FOR UNKNOWN INDICATION
     Dosage: 20 MILLIGRAM
     Route: 048
     Dates: start: 20121002
  4. ACYCLOVIR [Concomitant]
     Indication: PRODUCT USED FOR UNKNOWN INDICATION
     Dosage: 800 MILLIGRAM
     Route: 048
  5. ZYLOPRIM [Concomitant]
     Indication: PRODUCT USED FOR UNKNOWN INDICATION
     Dosage: 100 MILLIGRAM
     Route: 048
  6. DIPHENHYD-HC-NYSTATIN-TETRACYC [Concomitant]
     Indication: PRODUCT USED FOR UNKNOWN INDICATION
     Dosage: 5-10ML
     Route: 060
  7. DURAGESIC [Concomitant]
     Indication: PRODUCT USED FOR UNKNOWN INDICATION
     Dosage: 1 PATCH
     Route: 065
  8. DIFLUCAN [Concomitant]
     Indication: PRODUCT USED FOR UNKNOWN INDICATION
     Dosage: 200 MILLIGRAM
     Route: 048
  9. DILAUDID [Concomitant]
     Indication: PAIN
     Dosage: 1-2 TABLETS
     Route: 048
  10. PANTOPRAZOLE SODIUM [Concomitant]
     Indication: PRODUCT USED FOR UNKNOWN INDICATION
     Dosage: 40 MILLIGRAM
     Route: 048
  11. NEBUPENT [Concomitant]
     Indication: PRODUCT USED FOR UNKNOWN INDICATION
     Dosage: 300 MILLIGRAM
     Route: 065
     Dates: end: 20121207
  12. MIRALAX [Concomitant]
     Indication: PRODUCT USED FOR UNKNOWN INDICATION
     Dosage: 17 GRAM
     Route: 048
  13. SENNA-DOCUSATE SODIUM [Concomitant]
     Indication: CONSTIPATION PROPHYLAXIS
     Dosage: 8.6-50MG; 1-2 TABS
     Route: 065
  14. ZOLOFT [Concomitant]
     Indication: PRODUCT USED FOR UNKNOWN INDICATION
     Dosage: 50 MILLIGRAM
     Route: 048
  15. AMBIEN [Concomitant]
     Indication: SLEEP DISORDER
     Dosage: 5 MILLIGRAM
     Route: 048
  16. PREDNISONE [Concomitant]
     Indication: NIGHT SWEATS
     Dosage: 60 MILLIGRAM
     Route: 065
  17. PREDNISONE [Concomitant]
     Indication: NAUSEA
     Dosage: 20 MILLIGRAM
     Route: 048
  18. PREDNISONE [Concomitant]
     Indication: MALAISE
     Route: 065
  19. PREDNISONE [Concomitant]
     Indication: DEHYDRATION
     Route: 065
  20. ZOFRAN [Concomitant]
     Indication: NAUSEA
     Dosage: 24 MILLIGRAM
     Route: 048
  21. COMPAZINE [Concomitant]
     Indication: NAUSEA
     Dosage: 1-2 TABLETS
     Route: 048
  22. ATIVAN [Concomitant]
     Indication: NAUSEA
     Dosage: 2 MILLIGRAM
     Route: 048

REACTIONS (6)
  - Mantle cell lymphoma [Fatal]
  - Night sweats [Unknown]
  - Malaise [Unknown]
  - Nausea [Unknown]
  - Dehydration [Unknown]
  - Pyrexia [Unknown]
